FAERS Safety Report 10178720 (Version 1)
Quarter: 2014Q2

REPORT INFORMATION
  Report Type: Spontaneous
  Country: US (occurrence: None)
  Receive Date: 20140516
  Receipt Date: 20140516
  Transmission Date: 20141212
  Serious: Yes (Life-Threatening, Hospitalization, Disabling)
  Sender: FDA-Public Use
  Company Number: None

PATIENT
  Age: 37 Year
  Sex: Female
  Weight: 90.72 kg

DRUGS (5)
  1. PLAQUENIL [Suspect]
     Indication: SLE ARTHRITIS
     Dosage: 200MG, 1 PILL, TWICE DAILY, BY MOUTH
     Route: 048
     Dates: start: 201311, end: 201312
  2. PREDNISONE 5MG [Concomitant]
  3. FISH OIL [Concomitant]
  4. VITAMIN D3 [Concomitant]
  5. HONEY + CINNAMON [Concomitant]

REACTIONS (5)
  - Dizziness [None]
  - Blood pressure decreased [None]
  - Unevaluable event [None]
  - Dehydration [None]
  - Acute generalised exanthematous pustulosis [None]
